FAERS Safety Report 7965836-9 (Version None)
Quarter: 2011Q4

REPORT INFORMATION
  Report Type: 
  Country: None (occurrence: None)
  Receive Date: 20111208
  Receipt Date: 20111205
  Transmission Date: 20120403
  Serious: Yes (Life-Threatening, Other)
  Sender: FDA-Public Use
  Company Number: IN-ROXANE LABORATORIES, INC.-2011-RO-01741RO

PATIENT
  Age: 28 Year
  Sex: Female

DRUGS (7)
  1. AMLODIPINE [Suspect]
  2. DOPAMINE HCL [Suspect]
     Indication: HYPOTENSION
     Route: 042
  3. DOBUTAMINE HCL [Suspect]
     Indication: HYPOTENSION
     Route: 042
  4. FUROSEMIDE [Suspect]
  5. NOREPINEPHRINE BITARTRATE [Suspect]
     Indication: HYPOTENSION
     Route: 042
  6. DEXAMETHASONE [Suspect]
     Indication: HYPOTENSION
  7. VASOPRESSIN [Suspect]
     Indication: HYPOTENSION
     Route: 042

REACTIONS (10)
  - HYPOTENSION [None]
  - METABOLIC ACIDOSIS [None]
  - FLUID OVERLOAD [None]
  - INTENTIONAL OVERDOSE [None]
  - TOXICITY TO VARIOUS AGENTS [None]
  - NON-CARDIOGENIC PULMONARY OEDEMA [None]
  - HYPERKALAEMIA [None]
  - ACUTE RESPIRATORY DISTRESS SYNDROME [None]
  - SHOCK [None]
  - RENAL FAILURE ACUTE [None]
